FAERS Safety Report 10053566 (Version 8)
Quarter: 2019Q4

REPORT INFORMATION
  Report Type: Spontaneous
  Country: US (occurrence: US)
  Receive Date: 20140402
  Receipt Date: 20191211
  Transmission Date: 20200122
  Serious: No
  Sender: FDA-Public Use
  Company Number: US-PFIZER INC-2014089363

PATIENT
  Age: 59 Year
  Sex: Male
  Weight: 84.81 kg

DRUGS (3)
  1. DILANTIN [Suspect]
     Active Substance: PHENYTOIN
     Dosage: 500 MG, DAILY (3 TABS IN AM AND 2 TABS AT BED TIME 90 DAYS)
     Route: 048
  2. DILANTIN [Suspect]
     Active Substance: PHENYTOIN
     Dosage: 500 MG, DAILY (300 MG 1 TAB AM, 200 MG 1 TAB QHS)
  3. DILANTIN [Suspect]
     Active Substance: PHENYTOIN
     Indication: EPILEPSY
     Dosage: 500 MG, DAILY (300 MG 1 TAB AM, 200 MG 1 TAB QHS)
     Dates: start: 1979

REACTIONS (1)
  - Blood triglycerides increased [Unknown]

NARRATIVE: CASE EVENT DATE: 20140321
